FAERS Safety Report 18797555 (Version 1)
Quarter: 2021Q1

REPORT INFORMATION
  Report Type: Report from Study
  Country: MX (occurrence: MX)
  Receive Date: 20210127
  Receipt Date: 20210127
  Transmission Date: 20210419
  Serious: Yes (Other)
  Sender: FDA-Public Use
  Company Number: NVSC2021MX015888

PATIENT
  Age: 48 Year
  Sex: Female

DRUGS (1)
  1. TASIGNA [Suspect]
     Active Substance: NILOTINIB
     Indication: CHRONIC MYELOID LEUKAEMIA
     Dosage: 400 MG Q12H (EVERY 12 HOURS)
     Route: 048
     Dates: start: 201810

REACTIONS (5)
  - Influenza [Unknown]
  - Rhinorrhoea [Unknown]
  - Ovarian cyst [Unknown]
  - Lacrimation increased [Unknown]
  - Cough [Unknown]

NARRATIVE: CASE EVENT DATE: 20210115
